FAERS Safety Report 5023097-7 (Version None)
Quarter: 2006Q2

REPORT INFORMATION
  Report Type: 
  Country: None (occurrence: None)
  Receive Date: 20060428
  Receipt Date: 20060125
  Transmission Date: 20061013
  Serious: Yes (Hospitalization, Other)
  Sender: FDA-Public Use
  Company Number: 2006012343

PATIENT
  Age: 28 Year
  Sex: Female
  Weight: 61.2356 kg

DRUGS (1)
  1. BENADRYL [Suspect]
     Indication: INTENTIONAL OVERDOSE
     Dosage: 48 TABLETS ONCE, ORAL
     Route: 048
     Dates: start: 20060125, end: 20060125

REACTIONS (4)
  - DRUG EXPOSURE DURING PREGNANCY [None]
  - INTENTIONAL OVERDOSE [None]
  - MEDICATION ERROR [None]
  - SOMNOLENCE [None]
